FAERS Safety Report 7669715-6 (Version None)
Quarter: 2011Q3

REPORT INFORMATION
  Report Type: 
  Country: None (occurrence: None)
  Receive Date: 20110803
  Receipt Date: 20110719
  Transmission Date: 20111222
  Serious: Yes (Life-Threatening, Hospitalization)
  Sender: FDA-Public Use
  Company Number: 2011MA009062

PATIENT
  Age: 45 Year
  Sex: Female

DRUGS (10)
  1. PANTOPRAZOLE [Concomitant]
  2. REGULAR INSULIN [Concomitant]
  3. LEVETIRACETAM [Suspect]
     Indication: CONVULSION PROPHYLAXIS
     Dosage: 500 MG, BID;
  4. ATENOLOL [Concomitant]
  5. PROPOXYPHENE HYDROCHLORIDE [Concomitant]
  6. METHIMAZOLE [Suspect]
     Indication: HYPERTHYROIDISM
     Dosage: 10 MG, BID;
  7. ACETAMINOPHEN [Concomitant]
  8. ALENDRONATE SODIUM [Concomitant]
  9. FEXOFENADINE [Concomitant]
  10. IPRATROPIUM BROMIDE AND ALBUTEROL SULFATE [Concomitant]

REACTIONS (5)
  - ACUTE GENERALISED EXANTHEMATOUS PUSTULOSIS [None]
  - TREATMENT NONCOMPLIANCE [None]
  - RESPIRATORY FAILURE [None]
  - BODY TEMPERATURE DECREASED [None]
  - SEPTIC SHOCK [None]
